FAERS Safety Report 9599571 (Version 1)
Quarter: 2013Q4

REPORT INFORMATION
  Report Type: Spontaneous
  Country: US (occurrence: US)
  Receive Date: 20131004
  Receipt Date: 20131004
  Transmission Date: 20140711
  Serious: No
  Sender: FDA-Public Use
  Company Number: US-AMGEN-USASP2013029775

PATIENT
  Age: 54 Year
  Sex: Male

DRUGS (2)
  1. ENBREL [Suspect]
     Indication: PSORIASIS
     Dosage: 50 MG, TWICE A WEEK
     Dates: start: 20040805, end: 20070101
  2. STELERA [Concomitant]
     Dosage: UNK

REACTIONS (2)
  - Immune system disorder [Unknown]
  - Psoriasis [Not Recovered/Not Resolved]
